FAERS Safety Report 6637914-8 (Version None)
Quarter: 2010Q1

REPORT INFORMATION
  Report Type: 
  Country: None (occurrence: None)
  Receive Date: 20100317
  Receipt Date: 20100305
  Transmission Date: 20100710
  Serious: Yes (Hospitalization)
  Sender: FDA-Public Use
  Company Number: PHHY2010FR13735

PATIENT
  Sex: Female

DRUGS (1)
  1. EUCREAS [Suspect]
     Route: 065

REACTIONS (2)
  - DYSPEPSIA [None]
  - HEPATITIS C [None]
